FAERS Safety Report 11902198 (Version 1)
Quarter: 2016Q1

REPORT INFORMATION
  Report Type: Spontaneous
  Country: US (occurrence: US)
  Receive Date: 20160108
  Receipt Date: 20160108
  Transmission Date: 20160526
  Serious: No
  Sender: FDA-Public Use
  Company Number: US-TEVA-623654USA

PATIENT
  Age: 72 Year
  Sex: Male
  Weight: 77.18 kg

DRUGS (2)
  1. PROAIR HFA [Suspect]
     Active Substance: ALBUTEROL SULFATE
     Indication: PULMONARY CONGESTION
     Route: 055
     Dates: start: 20151230, end: 20160102
  2. ZITHROMAX [Suspect]
     Active Substance: AZITHROMYCIN DIHYDRATE
     Indication: PNEUMONIA
     Route: 065
     Dates: start: 20160101, end: 20160104

REACTIONS (4)
  - Frustration tolerance decreased [Unknown]
  - Decreased appetite [Unknown]
  - Ageusia [Not Recovered/Not Resolved]
  - Depression [Unknown]

NARRATIVE: CASE EVENT DATE: 20151231
